FAERS Safety Report 6572131-1 (Version None)
Quarter: 2010Q1

REPORT INFORMATION
  Report Type: 
  Country: None (occurrence: None)
  Receive Date: 20100205
  Receipt Date: 20100129
  Transmission Date: 20100710
  Serious: Yes (Life-Threatening)
  Sender: FDA-Public Use
  Company Number: US-SANOFI-AVENTIS-2010SA005758

PATIENT

DRUGS (1)
  1. MULTAQ [Suspect]
     Route: 065

REACTIONS (1)
  - HEPATIC FAILURE [None]
